FAERS Safety Report 4870159-0 (Version None)
Quarter: 2005Q4

REPORT INFORMATION
  Report Type: 
  Country: None (occurrence: None)
  Receive Date: 20051229
  Receipt Date: 20051229
  Transmission Date: 20060501
  Serious: No
  Sender: FDA-Public Use
  Company Number: None

PATIENT
  Age: 40 Year
  Sex: Female
  Weight: 68.0396 kg

DRUGS (1)
  1. PAROXETINE  40 MG   TEVA [Suspect]
     Indication: ANXIETY
     Dosage: 40 MG  Q. DAY  PO
     Route: 048
     Dates: start: 19960101, end: 20051228

REACTIONS (6)
  - DRUG WITHDRAWAL SYNDROME [None]
  - FEELING ABNORMAL [None]
  - MALAISE [None]
  - NIGHT SWEATS [None]
  - PARAESTHESIA [None]
  - TACHYCARDIA [None]
